FAERS Safety Report 6767182-8 (Version None)
Quarter: 2010Q2

REPORT INFORMATION
  Report Type: 
  Country: None (occurrence: None)
  Receive Date: 20100611
  Receipt Date: 20100611
  Transmission Date: 20101027
  Serious: No
  Sender: FDA-Public Use
  Company Number: None

PATIENT
  Age: 49 Year
  Sex: Male
  Weight: 117.73 kg

DRUGS (1)
  1. CLONIDINE [Suspect]
     Dosage: 0.1 MG OTHER TOP
     Route: 061
     Dates: start: 20071210, end: 20091015

REACTIONS (1)
  - WITHDRAWAL HYPERTENSION [None]
